FAERS Safety Report 7083285-5 (Version None)
Quarter: 2010Q4

REPORT INFORMATION
  Report Type: 
  Country: None (occurrence: None)
  Receive Date: 20101104
  Receipt Date: 20101025
  Transmission Date: 20110411
  Serious: Yes (Hospitalization, Other)
  Sender: FDA-Public Use
  Company Number: US-JNJFOC-20101007149

PATIENT
  Sex: Male
  Weight: 72.58 kg

DRUGS (19)
  1. REOPRO [Suspect]
     Indication: ANTICOAGULANT THERAPY
     Route: 042
  2. REOPRO [Suspect]
     Route: 042
  3. HEPARIN [Suspect]
     Indication: MYOCARDIAL INFARCTION
     Route: 042
  4. ANGIOMAX [Suspect]
     Indication: ANTICOAGULANT THERAPY
     Route: 042
  5. ANGIOMAX [Suspect]
     Route: 042
  6. TOPROL-XL [Concomitant]
  7. ZOCOR [Concomitant]
  8. ACETYLSALICYLIC ACID [Concomitant]
  9. PLAVIX [Concomitant]
  10. LOPRESSOR [Concomitant]
  11. VYTORIN [Concomitant]
  12. PROTONIX [Concomitant]
  13. PERCOCET [Concomitant]
  14. VERSED [Concomitant]
  15. FENTANYL [Concomitant]
  16. LIDOCAINE [Concomitant]
  17. PROPOFOL [Concomitant]
  18. REGLAN [Concomitant]
  19. NITROGLYCERIN [Concomitant]

REACTIONS (5)
  - HAEMATOMA [None]
  - HEADACHE [None]
  - HEPARIN-INDUCED THROMBOCYTOPENIA [None]
  - HYPERSENSITIVITY [None]
  - HYPOTENSION [None]
